FAERS Safety Report 14031887 (Version 1)
Quarter: 2017Q4

REPORT INFORMATION
  Report Type: Report from Study
  Country: JP (occurrence: JP)
  Receive Date: 20171002
  Receipt Date: 20171002
  Transmission Date: 20180321
  Serious: Yes (Other)
  Sender: FDA-Public Use
  Company Number: JP-AMGEN-JPNCT2016106777

PATIENT
  Sex: Male
  Weight: 73.3 kg

DRUGS (10)
  1. PANITUMUMAB [Suspect]
     Active Substance: PANITUMUMAB
     Indication: RECTAL CANCER
     Dosage: 430 MG, Q2WK
     Route: 041
     Dates: start: 20160621, end: 20160816
  2. OXALIPLATIN. [Concomitant]
     Active Substance: OXALIPLATIN
     Indication: RECTAL CANCER
     Dosage: 150 MG, Q2WEEKS
     Route: 041
     Dates: start: 20160621, end: 20160816
  3. CALCIUM LEVOFOLINATE [Concomitant]
     Active Substance: LEVOLEUCOVORIN CALCIUM
     Dosage: 350 MG, Q2WEEKS
     Route: 041
     Dates: start: 20160909, end: 20160923
  4. FLUOROURACIL. [Concomitant]
     Active Substance: FLUOROURACIL
     Dosage: 4350 MG, Q2WEEKS
     Route: 041
     Dates: start: 20160621, end: 20160816
  5. FLUOROURACIL. [Concomitant]
     Active Substance: FLUOROURACIL
     Dosage: 700 MG, Q2WK
     Route: 040
     Dates: start: 20160909, end: 20160923
  6. PANITUMUMAB [Suspect]
     Active Substance: PANITUMUMAB
     Dosage: 430 MG, Q2WK
     Route: 041
     Dates: start: 20160909, end: 20160923
  7. OXALIPLATIN. [Concomitant]
     Active Substance: OXALIPLATIN
     Dosage: 150 MG, Q2WEEKS
     Route: 041
     Dates: start: 20160909, end: 20160923
  8. FLUOROURACIL. [Concomitant]
     Active Substance: FLUOROURACIL
     Indication: RECTAL CANCER
     Dosage: 700 MG, Q2WK
     Route: 040
     Dates: start: 20160621, end: 20160816
  9. CALCIUM LEVOFOLINATE [Concomitant]
     Active Substance: LEVOLEUCOVORIN CALCIUM
     Indication: RECTAL CANCER
     Dosage: 350 MG, Q2WEEKS
     Route: 041
     Dates: start: 20160621, end: 20160816
  10. FLUOROURACIL. [Concomitant]
     Active Substance: FLUOROURACIL
     Dosage: 4350 MG, Q2WEEKS
     Route: 041
     Dates: start: 20160909, end: 20160923

REACTIONS (8)
  - Peripheral sensory neuropathy [Not Recovered/Not Resolved]
  - Diarrhoea [Not Recovered/Not Resolved]
  - Hyperkalaemia [Unknown]
  - Malaise [Recovered/Resolved]
  - Fatigue [Not Recovered/Not Resolved]
  - Decreased appetite [Recovered/Resolved]
  - Paronychia [Not Recovered/Not Resolved]
  - Nausea [Recovered/Resolved]
